FAERS Safety Report 20699980 (Version 2)
Quarter: 2022Q2

REPORT INFORMATION
  Report Type: Other
  Country: US (occurrence: None)
  Receive Date: 20220412
  Receipt Date: 20220415
  Transmission Date: 20220721
  Serious: No
  Sender: FDA-Public Use
  Company Number: US-ROCHE-3065911

PATIENT
  Sex: Female

DRUGS (2)
  1. XELODA [Suspect]
     Active Substance: CAPECITABINE
     Indication: Colon cancer
     Dosage: TAKE 3 TABLETS BY MOUTH TWICE A DAY MONDAY TO FRIDAY FOR 5 WEEKS
     Route: 048
  2. XELODA [Suspect]
     Active Substance: CAPECITABINE
     Indication: Metastases to liver
     Dosage: TAKE 2 TABLETS BY MOUTH TWICE A DAY MONDAY TO FRIDAY FOR 5 WEEKS
     Route: 048

REACTIONS (1)
  - Dementia [Unknown]
